FAERS Safety Report 5398500-3 (Version None)
Quarter: 2007Q3

REPORT INFORMATION
  Report Type: 
  Country: None (occurrence: None)
  Receive Date: 20070726
  Receipt Date: 20070201
  Transmission Date: 20080115
  Serious: No
  Sender: FDA-Public Use
  Company Number: US-AMGEN-KDL209426

PATIENT
  Sex: Male

DRUGS (3)
  1. PROCRIT [Suspect]
     Indication: DIALYSIS
     Dates: start: 20070116, end: 20070118
  2. UNSPECIFIED PAIN MEDICATION [Concomitant]
  3. RESPIRATORY MEDICATION NOS [Concomitant]

REACTIONS (2)
  - PYREXIA [None]
  - RASH [None]
